FAERS Safety Report 9943100 (Version 3)
Quarter: 2014Q1

REPORT INFORMATION
  Report Type: Report from Study
  Country: KR (occurrence: KR)
  Receive Date: 20140303
  Receipt Date: 20140313
  Transmission Date: 20141002
  Serious: Yes (Hospitalization)
  Sender: FDA-Public Use
  Company Number: KR-B.I. PHARMACEUTICALS,INC./RIDGEFIELD-2014-BI-06345BI

PATIENT
  Age: 44 Year
  Sex: Female
  Weight: 55.7 kg

DRUGS (2)
  1. AFATINIB [Suspect]
     Indication: NON-SMALL CELL LUNG CANCER
     Dosage: 40 MG
     Route: 048
     Dates: start: 20140118, end: 20140129
  2. AFATINIB [Suspect]
     Dosage: 40 MG
     Route: 048
     Dates: start: 20140130, end: 20140209

REACTIONS (3)
  - Cellulitis [Recovered/Resolved]
  - Abscess limb [Recovered/Resolved]
  - Pathological fracture [Recovered/Resolved]
